FAERS Safety Report 12541127 (Version 2)
Quarter: 2016Q3

REPORT INFORMATION
  Report Type: Spontaneous
  Country: ES (occurrence: ES)
  Receive Date: 20160708
  Receipt Date: 20160916
  Transmission Date: 20161109
  Serious: Yes (Hospitalization, Disabling, Other)
  Sender: FDA-Public Use
  Company Number: ES-BAYER-2016-129478

PATIENT
  Age: 63 Year
  Sex: Male

DRUGS (3)
  1. STIVARGA [Suspect]
     Active Substance: REGORAFENIB
     Indication: COLORECTAL CANCER STAGE IV
     Dosage: 120 MG, QD
  2. STIVARGA [Suspect]
     Active Substance: REGORAFENIB
     Indication: METASTASES TO LIVER
  3. STIVARGA [Suspect]
     Active Substance: REGORAFENIB
     Indication: METASTASES TO PERITONEUM

REACTIONS (11)
  - Fall [None]
  - Vomiting [None]
  - Joint injury [None]
  - Dysuria [None]
  - Dehydration [None]
  - Fatigue [None]
  - Abdominal pain lower [None]
  - Diarrhoea [Recovering/Resolving]
  - Hypotension [Recovered/Resolved]
  - Prerenal failure [None]
  - Off label use [None]
